FAERS Safety Report 11273301 (Version 1)
Quarter: 2015Q3

REPORT INFORMATION
  Report Type: Spontaneous
  Country: US (occurrence: US)
  Receive Date: 20150715
  Receipt Date: 20150715
  Transmission Date: 20151125
  Serious: No
  Sender: FDA-Public Use
  Company Number: US-BAUSCH-BL-2014-003562

PATIENT
  Sex: Male

DRUGS (2)
  1. BRINZOLAMIDE [Interacting]
     Active Substance: BRINZOLAMIDE
     Indication: PRODUCT USED FOR UNKNOWN INDICATION
  2. ISTALOL [Suspect]
     Active Substance: TIMOLOL MALEATE
     Indication: PRODUCT USED FOR UNKNOWN INDICATION
     Route: 047

REACTIONS (2)
  - Ocular hyperaemia [Not Recovered/Not Resolved]
  - Skin discolouration [Not Recovered/Not Resolved]
